FAERS Safety Report 9956389 (Version 2)
Quarter: 2014Q1

REPORT INFORMATION
  Report Type: Report from Study
  Country: US (occurrence: US)
  Receive Date: 20140304
  Receipt Date: 20140327
  Transmission Date: 20141002
  Serious: Yes (Death, Hospitalization)
  Sender: FDA-Public Use
  Company Number: US-ROCHE-1359643

PATIENT
  Age: 73 Year
  Sex: Female

DRUGS (2)
  1. XELODA [Suspect]
     Indication: CARCINOID TUMOUR
     Dosage: 14 DAYS ON 7 DAYS OFF
     Route: 048
  2. XELODA [Suspect]
     Indication: CARCINOID SYNDROME

REACTIONS (3)
  - Death [Fatal]
  - Dizziness [Unknown]
  - Renal disorder [Unknown]
